FAERS Safety Report 24799584 (Version 1)
Quarter: 2025Q1

REPORT INFORMATION
  Report Type: Report from Study
  Country: US (occurrence: US)
  Receive Date: 20250102
  Receipt Date: 20250102
  Transmission Date: 20250409
  Serious: Yes (Other)
  Sender: MYLAN
  Company Number: US-MYLANLABS-2023M1136004

PATIENT
  Sex: Male

DRUGS (6)
  1. PHENYTOIN [Suspect]
     Active Substance: PHENYTOIN
     Indication: Epilepsy
     Route: 065
  2. DILANTIN [Suspect]
     Active Substance: PHENYTOIN
     Indication: Epilepsy
     Dosage: 30 MILLIGRAM, BID (2 CAPSULES, TWICE A DAY)
     Route: 048
     Dates: start: 2012
  3. DILANTIN [Suspect]
     Active Substance: PHENYTOIN
     Dosage: 30 MILLIGRAM, QID (2 CAPSULES, FOUR TIMES A DAY)
     Route: 048
  4. DILANTIN [Suspect]
     Active Substance: PHENYTOIN
     Indication: Epilepsy
     Dosage: 100 MILLIGRAM, BID (2 CAPSULES, TWICE A DAY)
     Route: 048
     Dates: start: 2024
  5. VENLAFAXINE HYDROCHLORIDE [Suspect]
     Active Substance: VENLAFAXINE HYDROCHLORIDE
     Indication: Anxiety
     Dosage: 75 MILLIGRAM, QD (EXTENDED RELEASE, 1 CAPSULE WITH FOOD)
     Route: 048
  6. GABAPENTIN [Concomitant]
     Active Substance: GABAPENTIN
     Dosage: 600 MILLIGRAM, BID
     Route: 065
     Dates: start: 202307

REACTIONS (4)
  - Partial seizures [Unknown]
  - Drug intolerance [Unknown]
  - Drug ineffective [Unknown]
  - Incorrect dosage administered [Unknown]

NARRATIVE: CASE EVENT DATE: 20240101
